FAERS Safety Report 4639505-7 (Version None)
Quarter: 2005Q2

REPORT INFORMATION
  Report Type: 
  Country: None (occurrence: None)
  Receive Date: 20050419
  Receipt Date: 20050412
  Transmission Date: 20051028
  Serious: Yes (Death)
  Sender: FDA-Public Use
  Company Number: 2005-127338-NL

PATIENT
  Age: 83 Year
  Sex: Male

DRUGS (1)
  1. REMERON [Suspect]
     Dosage: 15 MG QD ORAL
     Route: 048
     Dates: start: 20040401

REACTIONS (1)
  - COMPLETED SUICIDE [None]
